FAERS Safety Report 6946039-3 (Version None)
Quarter: 2010Q3

REPORT INFORMATION
  Report Type: 
  Country: None (occurrence: None)
  Receive Date: 20100827
  Receipt Date: 20090714
  Transmission Date: 20110219
  Serious: No
  Sender: FDA-Public Use
  Company Number: A0796896A

PATIENT
  Sex: Female

DRUGS (2)
  1. ACYCLOVIR SODIUM [Suspect]
     Route: 048
     Dates: start: 19960101
  2. NO CONCURRENT MEDICATION [Concomitant]

REACTIONS (1)
  - DRUG INEFFECTIVE [None]
